FAERS Safety Report 16407958 (Version 1)
Quarter: 2019Q2

REPORT INFORMATION
  Report Type: Spontaneous
  Country: US (occurrence: US)
  Receive Date: 20190610
  Receipt Date: 20190610
  Transmission Date: 20190711
  Serious: Yes (Other)
  Sender: FDA-Public Use
  Company Number: US-CIPLA LTD.-2019US04317

PATIENT

DRUGS (11)
  1. BUDESONIDE. [Suspect]
     Active Substance: BUDESONIDE
     Indication: PNEUMONIA
     Dosage: 0.5 MG/2 ML, BID (MORNING AND NIGHT I.E., TWICE A DAY)
     Route: 065
  2. BROVANA [Concomitant]
     Active Substance: ARFORMOTEROL TARTRATE
     Indication: PNEUMONIA
  3. PREDNISONE. [Concomitant]
     Active Substance: PREDNISONE
     Indication: ASTHMA
     Dosage: 20 MILLIGRAM, QD
     Route: 065
     Dates: start: 20190508
  4. PREDNISONE. [Concomitant]
     Active Substance: PREDNISONE
     Indication: PNEUMONIA
  5. IPRATROPIUM BROMIDE. [Concomitant]
     Active Substance: IPRATROPIUM BROMIDE
     Indication: ASTHMA
     Dosage: 0.5MG/ 2.5ML-0.02PERCENT, QID
     Route: 065
     Dates: start: 201710
  6. PRIMIDONE. [Concomitant]
     Active Substance: PRIMIDONE
     Indication: ESSENTIAL TREMOR
     Dosage: 250 MILLIGRAM, PER DAY, SINCE 10 YEARS
     Route: 065
  7. BROVANA [Concomitant]
     Active Substance: ARFORMOTEROL TARTRATE
     Indication: ASTHMA
     Dosage: 15MCG/2 ML, BID
     Route: 065
     Dates: start: 20190508
  8. ALBUTEROL                          /00139501/ [Concomitant]
     Active Substance: ALBUTEROL
     Indication: ASTHMA
     Dosage: 2.5MG/25 ML, BID
     Route: 065
     Dates: start: 201710
  9. PANTOPRAZOLE [Concomitant]
     Active Substance: PANTOPRAZOLE
     Indication: GASTRITIS
     Dosage: 30 MILLIGRAM, QD
     Route: 065
     Dates: start: 201806
  10. BUDESONIDE. [Suspect]
     Active Substance: BUDESONIDE
     Indication: TRACHEOBRONCHITIS
     Dosage: UNK
     Route: 065
  11. BUDESONIDE. [Suspect]
     Active Substance: BUDESONIDE
     Indication: ASTHMA

REACTIONS (2)
  - Liquid product physical issue [Unknown]
  - Drug ineffective [Unknown]
